FAERS Safety Report 19916468 (Version 8)
Quarter: 2023Q2

REPORT INFORMATION
  Report Type: Report from Study
  Country: IT (occurrence: None)
  Receive Date: 20211004
  Receipt Date: 20230414
  Transmission Date: 20230721
  Serious: Yes (Death, Life-Threatening)
  Sender: FDA-Public Use
  Company Number: IT-ROCHE-2926765

PATIENT
  Age: 73 Year
  Sex: Male
  Weight: 68 kg

DRUGS (2)
  1. ATEZOLIZUMAB [Suspect]
     Active Substance: ATEZOLIZUMAB
     Indication: Hepatocellular carcinoma
     Dosage: THE DATE OF MOST RECENT DOSE OF ATEZOLIZUMAB (1200 MG) PRIOR TO AE AND SAE (SERIOUS ADVERSE EVENT) O
     Route: 041
     Dates: start: 20210201
  2. BEVACIZUMAB [Suspect]
     Active Substance: BEVACIZUMAB
     Indication: Hepatocellular carcinoma
     Dosage: FIRST DOSE NOT REPORTED 15 MG/KG  (CAPTURED AS PER PROTOCOL)?THE DATE OF MOST RECENT DOSE OF BEVACIZ
     Route: 042
     Dates: start: 20210201

REACTIONS (3)
  - Haematemesis [Not Recovered/Not Resolved]
  - Melaena [Not Recovered/Not Resolved]
  - Shock haemorrhagic [Fatal]

NARRATIVE: CASE EVENT DATE: 20210927
